FAERS Safety Report 7904358-8 (Version None)
Quarter: 2011Q4

REPORT INFORMATION
  Report Type: 
  Country: None (occurrence: None)
  Receive Date: 20111109
  Receipt Date: 20111104
  Transmission Date: 20120403
  Serious: Yes (Other)
  Sender: FDA-Public Use
  Company Number: CL-PFIZER INC-2011252258

PATIENT
  Age: 63 Year
  Sex: Male

DRUGS (5)
  1. AZULFIDINE [Suspect]
     Dosage: 500 MG, 2X/DAY
     Route: 048
     Dates: start: 20111001, end: 20111019
  2. URSO FALK [Concomitant]
     Indication: LIVER DISORDER
     Dosage: 250MG/DAY
     Dates: start: 20100101
  3. AZULFIDINE [Suspect]
     Dosage: 500 MG, 1X/DAY
  4. TRAMADOL [Concomitant]
     Indication: PAIN
     Dosage: 25 GTT, 2X/DAY
     Dates: start: 20110101
  5. AZULFIDINE [Suspect]
     Indication: SPINAL CORD DISORDER
     Dosage: 500 MG, 1X/DAY
     Route: 048
     Dates: start: 20111005, end: 20111001

REACTIONS (2)
  - ABDOMINAL PAIN [None]
  - LIVER DISORDER [None]
